FAERS Safety Report 24570853 (Version 1)
Quarter: 2024Q4

REPORT INFORMATION
  Report Type: Other
  Country: US (occurrence: US)
  Receive Date: 20241101
  Receipt Date: 20241101
  Transmission Date: 20250115
  Serious: Yes (Death, Other)
  Sender: AVEVA
  Company Number: US-AVEVA-000769

PATIENT
  Age: 31 Year
  Sex: Male

DRUGS (2)
  1. FENTANYL [Suspect]
     Active Substance: FENTANYL
     Indication: Product used for unknown indication
     Dosage: UNK
     Route: 065
  2. METHAMPHETAMINE [Suspect]
     Active Substance: METHAMPHETAMINE
     Indication: Product used for unknown indication
     Dosage: UNK
     Route: 065

REACTIONS (10)
  - Toxicity to various agents [Fatal]
  - Anion gap [Fatal]
  - Agitation [Fatal]
  - Pneumonitis aspiration [Fatal]
  - Delirium [Fatal]
  - Hepatotoxicity [Fatal]
  - Rhabdomyolysis [Fatal]
  - Sympathomimetic effect [Fatal]
  - Blister [Fatal]
  - Brain death [Fatal]
